FAERS Safety Report 11281057 (Version 1)
Quarter: 2015Q3

REPORT INFORMATION
  Report Type: Spontaneous
  Country: US (occurrence: US)
  Receive Date: 20150717
  Receipt Date: 20150717
  Transmission Date: 20151125
  Serious: Yes (Congenital Anomaly, Other)
  Sender: FDA-Public Use
  Company Number: US-APOTEX-2014AP002829

PATIENT

DRUGS (1)
  1. PAXIL [Suspect]
     Active Substance: PAROXETINE HYDROCHLORIDE
     Indication: PRODUCT USED FOR UNKNOWN INDICATION
     Dosage: 20 MG, UNK
     Route: 064
     Dates: start: 19991227, end: 20000407

REACTIONS (5)
  - Congenital central nervous system anomaly [Unknown]
  - Seizure [Unknown]
  - Foetal exposure during pregnancy [Unknown]
  - Dyspraxia [Unknown]
  - Neural tube defect [Unknown]
